FAERS Safety Report 7435762-2 (Version None)
Quarter: 2011Q2

REPORT INFORMATION
  Report Type: 
  Country: None (occurrence: None)
  Receive Date: 20110425
  Receipt Date: 20110418
  Transmission Date: 20111010
  Serious: Yes (Hospitalization)
  Sender: FDA-Public Use
  Company Number: US-PFIZER INC-2011085453

PATIENT
  Age: 3 Year
  Sex: Male

DRUGS (1)
  1. DIMETAPP [Suspect]
     Dosage: UNK, 6-7 OUSNCE

REACTIONS (3)
  - ACCIDENTAL OVERDOSE [None]
  - ACCIDENTAL DRUG INTAKE BY CHILD [None]
  - PRODUCT CLOSURE ISSUE [None]
